FAERS Safety Report 11909975 (Version 1)
Quarter: 2016Q1

REPORT INFORMATION
  Report Type: Spontaneous
  Country: US (occurrence: None)
  Receive Date: 20160111
  Receipt Date: 20160111
  Transmission Date: 20160526
  Serious: Yes (Other)
  Sender: FDA-Public Use
  Company Number: None

PATIENT
  Age: 72 Year
  Sex: Male
  Weight: 63.5 kg

DRUGS (6)
  1. VITAMINE D [Concomitant]
  2. ATORVASTATIN [Concomitant]
     Active Substance: ATORVASTATIN
  3. AMLODIPINE [Concomitant]
     Active Substance: AMLODIPINE BESYLATE
  4. RIVASTIGMINE 6 MG BRECKENRIDGE [Suspect]
     Active Substance: RIVASTIGMINE
     Indication: PRODUCT SUBSTITUTION
     Dosage: 1 PILL ONCE DAILY
     Route: 048
  5. CARBIDOPA-LEVODOPA [Concomitant]
     Active Substance: CARBIDOPA\LEVODOPA
  6. BABY ASPIRIN [Concomitant]
     Active Substance: ASPIRIN

REACTIONS (6)
  - Incoherent [None]
  - Nausea [None]
  - Tremor [None]
  - Dizziness [None]
  - Abasia [None]
  - Product substitution issue [None]

NARRATIVE: CASE EVENT DATE: 20160108
